FAERS Safety Report 15853000 (Version 1)
Quarter: 2019Q1

REPORT INFORMATION
  Report Type: Spontaneous
  Country: US (occurrence: US)
  Receive Date: 20190122
  Receipt Date: 20190122
  Transmission Date: 20190417
  Serious: No
  Sender: FDA-Public Use
  Company Number: US-PERRIGO-17US031995

PATIENT
  Sex: Female
  Weight: 108.84 kg

DRUGS (1)
  1. IBUPROFEN. [Suspect]
     Active Substance: IBUPROFEN
     Indication: PAIN
     Dosage: 400 TO 600 MG, UP TO TID, PRN
     Route: 048
     Dates: end: 20171228

REACTIONS (2)
  - Expired product administered [Recovered/Resolved]
  - Incorrect dose administered [Recovered/Resolved]
